FAERS Safety Report 24061527 (Version 1)
Quarter: 2024Q3

REPORT INFORMATION
  Report Type: Spontaneous
  Country: US (occurrence: None)
  Receive Date: 20240706
  Receipt Date: 20240706
  Transmission Date: 20241016
  Serious: Yes (Life-Threatening, Hospitalization)
  Sender: Public
  Company Number: None

PATIENT
  Age: 35 Year
  Sex: Male
  Weight: 96.75 kg

DRUGS (1)
  1. .DELTA.9-TETRAHYDROCANNABINOL\HERBALS [Suspect]
     Active Substance: .DELTA.9-TETRAHYDROCANNABINOL\HERBALS

REACTIONS (11)
  - Malaise [None]
  - Unresponsive to stimuli [None]
  - Vomiting [None]
  - Areflexia [None]
  - Hypopnoea [None]
  - Substance use [None]
  - Drug screen positive [None]
  - Nausea [None]
  - Dizziness [None]
  - Amnesia [None]
  - Drug interaction [None]

NARRATIVE: CASE EVENT DATE: 20240627
